FAERS Safety Report 5692672-9 (Version None)
Quarter: 2008Q2

REPORT INFORMATION
  Report Type: 
  Country: None (occurrence: None)
  Receive Date: 20080401
  Receipt Date: 20080318
  Transmission Date: 20081010
  Serious: Yes (Hospitalization)
  Sender: FDA-Public Use
  Company Number: TCI2008A01470

PATIENT
  Age: 74 Year
  Sex: Male

DRUGS (5)
  1. ACTOS [Suspect]
     Indication: DIABETES MELLITUS
     Dosage: 15 MG (15 MG, 1 IN 1 D)  PER ORAL
     Route: 048
     Dates: start: 20040901, end: 20080226
  2. AMARYL [Concomitant]
  3. KINEDAK (EPALRESTAT) [Concomitant]
  4. JUVELA N (TOCOPHERYL NICOTINATE) [Concomitant]
  5. PLAVIX [Concomitant]

REACTIONS (11)
  - ARTERIOSCLEROSIS OBLITERANS [None]
  - ASCITES [None]
  - BLOOD PRESSURE INCREASED [None]
  - DYSPNOEA [None]
  - INTERVERTEBRAL DISC PROTRUSION [None]
  - OEDEMA [None]
  - PAIN IN EXTREMITY [None]
  - PERICARDIAL EFFUSION [None]
  - PLEURAL EFFUSION [None]
  - PROTEIN URINE PRESENT [None]
  - WEIGHT INCREASED [None]
